FAERS Safety Report 7449681-9 (Version None)
Quarter: 2011Q2

REPORT INFORMATION
  Report Type: 
  Country: None (occurrence: None)
  Receive Date: 20110421
  Receipt Date: 20110406
  Transmission Date: 20111010
  Serious: Yes (Hospitalization, Other)
  Sender: FDA-Public Use
  Company Number: NSR_00220_2011

PATIENT
  Age: 28 Year
  Sex: Male

DRUGS (2)
  1. IBUPROFEN/CODEINE PHOSPHATE [Suspect]
     Indication: PRODUCT USED FOR UNKNOWN INDICATION
     Dosage: (19200 MG, [72-96 TABLETS PER DAY])
  2. IBUPROFEN/CODEINE PHOSPHATE [Suspect]
     Indication: PRODUCT USED FOR UNKNOWN INDICATION
     Dosage: (1229 MG, [72-96 TABLETS PER DAY])

REACTIONS (14)
  - DRUG ABUSE [None]
  - ANAEMIA [None]
  - GASTRIC ULCER [None]
  - VOMITING [None]
  - DIVERTICULUM INTESTINAL [None]
  - DYSPHAGIA [None]
  - NAUSEA [None]
  - PNEUMONIA ASPIRATION [None]
  - OESOPHAGITIS [None]
  - DUODENAL STENOSIS [None]
  - IMPAIRED GASTRIC EMPTYING [None]
  - DUODENAL ULCER [None]
  - INCORRECT DOSE ADMINISTERED [None]
  - FOREIGN BODY [None]
